FAERS Safety Report 15618168 (Version 4)
Quarter: 2019Q4

REPORT INFORMATION
  Report Type: Spontaneous
  Country: US (occurrence: US)
  Receive Date: 20181114
  Receipt Date: 20191113
  Transmission Date: 20200122
  Serious: No
  Sender: FDA-Public Use
  Company Number: US-PFIZER INC-2018459252

PATIENT
  Age: 11 Year
  Sex: Female
  Weight: 39.2 kg

DRUGS (3)
  1. GENOTROPIN [Suspect]
     Active Substance: SOMATROPIN
     Dosage: 0.8 MG, UNK [ALTERNATING DOSE OF 0.8MG AND 1MG, 6 DAYS A WEEK]
     Dates: start: 20171224
  2. GENOTROPIN [Suspect]
     Active Substance: SOMATROPIN
     Dosage: UNK, DAILY (0.6MG ALTERNATING WITH 0.8MG DAILY)
     Dates: start: 201712
  3. GENOTROPIN [Suspect]
     Active Substance: SOMATROPIN
     Dosage: 1 MG, UNK [ALTERNATING DOSE OF 0.8MG AND 1MG, 6 DAYS A WEEK]
     Dates: start: 20171224

REACTIONS (12)
  - Blood alkaline phosphatase increased [Unknown]
  - Mean cell haemoglobin decreased [Unknown]
  - Red blood cell count increased [Unknown]
  - Blood iron increased [Unknown]
  - Device issue [Recovered/Resolved]
  - Blood glucose increased [Unknown]
  - Mean cell haemoglobin concentration decreased [Unknown]
  - Mean cell volume decreased [Unknown]
  - Aspartate aminotransferase increased [Unknown]
  - Product dose omission [Recovered/Resolved]
  - Red cell distribution width increased [Unknown]
  - Serum ferritin decreased [Unknown]

NARRATIVE: CASE EVENT DATE: 20180405
